FAERS Safety Report 9616791 (Version 2)
Quarter: 2013Q4

REPORT INFORMATION
  Report Type: Spontaneous
  Country: DE (occurrence: DE)
  Receive Date: 20131011
  Receipt Date: 20131017
  Transmission Date: 20140711
  Serious: Yes (Hospitalization)
  Sender: FDA-Public Use
  Company Number: DE-EISAI INC-E2007-01350-SPO-DE

PATIENT
  Age: 30 Year
  Sex: Male
  Weight: 50 kg

DRUGS (6)
  1. FYCOMPA (PERAMPANEL) [Suspect]
     Indication: EPILEPSY
     Route: 048
     Dates: start: 20130604
  2. VOTUBIA [Interacting]
     Indication: TUBEROUS SCLEROSIS
     Dosage: 2.5 MG DAILY
     Route: 048
     Dates: start: 201304
  3. LACOSAMID [Concomitant]
     Indication: EPILEPSY
     Dosage: 400 MG DAILY
     Route: 048
  4. LAMOTRIGIN [Concomitant]
     Indication: EPILEPSY
     Dosage: 600 MG DAILY
     Route: 048
  5. RISPERIDON [Concomitant]
     Indication: ABNORMAL BEHAVIOUR
     Dosage: 1.5 MG DAILY
     Route: 048
  6. CANDESARTAN [Concomitant]
     Indication: HYPERTENSION
     Dosage: 4 MG DAILY
     Route: 048
     Dates: start: 201305, end: 201307

REACTIONS (2)
  - Ventricular tachycardia [Recovered/Resolved]
  - Drug interaction [Recovered/Resolved]
